FAERS Safety Report 8320484-6 (Version None)
Quarter: 2012Q2

REPORT INFORMATION
  Report Type: 
  Country: None (occurrence: None)
  Receive Date: 20120427
  Receipt Date: 20120427
  Transmission Date: 20120825
  Serious: Yes (Hospitalization, Other)
  Sender: FDA-Public Use
  Company Number: None

PATIENT
  Age: 22 Year
  Sex: Female
  Weight: 97.975 kg

DRUGS (1)
  1. PHENTERMINE [Suspect]
     Indication: MEDICAL DIET
     Dosage: ONE TABLET
     Route: 048
     Dates: start: 20120325, end: 20120327

REACTIONS (1)
  - GRAND MAL CONVULSION [None]
